FAERS Safety Report 6993220-3 (Version None)
Quarter: 2010Q3

REPORT INFORMATION
  Report Type: 
  Country: None (occurrence: None)
  Receive Date: 20100917
  Receipt Date: 20091006
  Transmission Date: 20110219
  Serious: No
  Sender: FDA-Public Use
  Company Number: US-ASTRAZENECA-2009SE18273

PATIENT
  Age: 59 Year
  Sex: Female
  Weight: 165 kg

DRUGS (8)
  1. SEROQUEL [Suspect]
     Indication: SLEEP DISORDER
     Route: 048
  2. SEROQUEL [Suspect]
     Indication: STRESS
     Route: 048
  3. SEROQUEL [Suspect]
     Indication: TEMPOROMANDIBULAR JOINT SYNDROME
     Route: 048
  4. SEROQUEL [Suspect]
     Indication: DEPRESSION
     Route: 048
  5. REMERON [Concomitant]
  6. KLONOPIN [Concomitant]
  7. AMBIEN CR [Concomitant]
  8. LEXAPRO [Concomitant]

REACTIONS (5)
  - DEPRESSION [None]
  - DISABILITY [None]
  - MENTAL DISORDER [None]
  - SLEEP DISORDER [None]
  - STRESS [None]
